FAERS Safety Report 8521466-1 (Version None)
Quarter: 2012Q3

REPORT INFORMATION
  Report Type: 
  Country: None (occurrence: None)
  Receive Date: 20120719
  Receipt Date: 20120717
  Transmission Date: 20120928
  Serious: No
  Sender: FDA-Public Use
  Company Number: US-009507513-1207USA005824

PATIENT

DRUGS (3)
  1. REBETOL [Suspect]
  2. TELAPREVIR [Suspect]
  3. PEG-INTRON [Suspect]
     Indication: HEPATITIS C
     Dosage: UNK
     Dates: start: 20120706

REACTIONS (2)
  - INJECTION SITE ERYTHEMA [None]
  - APPLICATION SITE PRURITUS [None]
